FAERS Safety Report 12186854 (Version 1)
Quarter: 2016Q1

REPORT INFORMATION
  Report Type: Spontaneous
  Country: US (occurrence: None)
  Receive Date: 20160316
  Receipt Date: 20160316
  Transmission Date: 20160526
  Serious: No
  Sender: FDA-Public Use
  Company Number: None

PATIENT
  Age: 39 Year
  Sex: Female
  Weight: 70.31 kg

DRUGS (6)
  1. OMEPRAZOLE 40 MG KREMERS URBAN [Suspect]
     Active Substance: OMEPRAZOLE
     Indication: GASTROOESOPHAGEAL REFLUX DISEASE
     Route: 048
     Dates: start: 20160312, end: 20160314
  2. KLONOPIN [Concomitant]
     Active Substance: CLONAZEPAM
  3. VITASHINE D3 [Concomitant]
  4. MIRILAX [Concomitant]
  5. ADDERALL [Concomitant]
     Active Substance: AMPHETAMINE ASPARTATE\AMPHETAMINE SULFATE\DEXTROAMPHETAMINE SACCHARATE\DEXTROAMPHETAMINE SULFATE
  6. OXYCODONE [Concomitant]
     Active Substance: OXYCODONE

REACTIONS (4)
  - Flatulence [None]
  - Peripheral swelling [None]
  - Skin exfoliation [None]
  - Joint swelling [None]

NARRATIVE: CASE EVENT DATE: 20160315
